FAERS Safety Report 6811828-2 (Version None)
Quarter: 2010Q3

REPORT INFORMATION
  Report Type: 
  Country: None (occurrence: None)
  Receive Date: 20100701
  Receipt Date: 20100618
  Transmission Date: 20110219
  Serious: Yes (Death, Other)
  Sender: FDA-Public Use
  Company Number: GB-JNJFOC-20091100675

PATIENT
  Age: 5 Month
  Sex: Male

DRUGS (2)
  1. REMICADE [Suspect]
     Indication: DRUG EXPOSURE DURING PREGNANCY
     Route: 064
     Dates: start: 20040101
  2. REMICADE [Suspect]
     Route: 064
     Dates: start: 20040101

REACTIONS (3)
  - BOVINE TUBERCULOSIS [None]
  - HAEMORRHAGE [None]
  - PREMATURE BABY [None]
